FAERS Safety Report 11881232 (Version 2)
Quarter: 2016Q1

REPORT INFORMATION
  Report Type: Spontaneous
  Country: KR (occurrence: KR)
  Receive Date: 20151231
  Receipt Date: 20160108
  Transmission Date: 20160526
  Serious: Yes (Hospitalization)
  Sender: FDA-Public Use
  Company Number: KR-009507513-1512KOR013193

PATIENT
  Age: 63 Year
  Sex: Male
  Weight: 50.2 kg

DRUGS (11)
  1. CISPLATIN. [Concomitant]
     Active Substance: CISPLATIN
     Indication: NEOPLASM MALIGNANT
     Dosage: 150 MG, ONCE
     Route: 042
     Dates: start: 20151216, end: 20151216
  2. EMEND (FOSAPREPITANT DIMEGLUMINE) [Suspect]
     Active Substance: FOSAPREPITANT DIMEGLUMINE
     Indication: PROPHYLAXIS OF NAUSEA AND VOMITING
     Dosage: 150 MG, ONCE
     Route: 042
     Dates: start: 20151216, end: 20151216
  3. LASIX [Concomitant]
     Active Substance: FUROSEMIDE
     Indication: DRUG TOXICITY PROPHYLAXIS
     Dosage: 20 MG, ONCE
     Route: 042
     Dates: start: 20151216, end: 20151216
  4. MEGACE F [Concomitant]
     Indication: PROPHYLAXIS
     Dosage: 5 ML, QD
     Route: 048
     Dates: start: 20151206, end: 20151213
  5. ANYCOUGH [Concomitant]
     Indication: PROPHYLAXIS
     Dosage: 300 MG, BID
     Route: 048
     Dates: start: 20151213, end: 20151215
  6. MANNITOL. [Concomitant]
     Active Substance: MANNITOL
     Indication: DRUG TOXICITY PROPHYLAXIS
     Dosage: 100 ML, ONCE
     Route: 042
     Dates: start: 20151216, end: 20151216
  7. ALOXI [Concomitant]
     Active Substance: PALONOSETRON HYDROCHLORIDE
     Indication: VOMITING
     Dosage: 5 ML, ONCE
     Route: 042
     Dates: start: 20151216, end: 20151216
  8. SOLETON [Concomitant]
     Active Substance: ZALTOPROFEN
     Indication: PAIN PROPHYLAXIS
     Dosage: 80 MG, TID
     Route: 048
     Dates: start: 20151213, end: 20151215
  9. DEXAMETHASONE. [Concomitant]
     Active Substance: DEXAMETHASONE
     Indication: VOMITING
     Dosage: 8 MG, QD
     Route: 048
     Dates: start: 20151217, end: 20151217
  10. CISPLATIN. [Concomitant]
     Active Substance: CISPLATIN
     Indication: NEOPLASM MALIGNANT
     Dosage: 3 MG, ONCE
     Route: 042
     Dates: start: 20151216, end: 20151216
  11. DEXAMETHASONE SODIUM PHOSPHATE. [Concomitant]
     Active Substance: DEXAMETHASONE SODIUM PHOSPHATE
     Indication: VOMITING
     Dosage: 12 MG, ONCE
     Route: 042
     Dates: start: 20151216, end: 20151216

REACTIONS (1)
  - Dysphagia [Recovered/Resolved]

NARRATIVE: CASE EVENT DATE: 20151217
